FAERS Safety Report 21768384 (Version 2)
Quarter: 2023Q1

REPORT INFORMATION
  Report Type: Spontaneous
  Country: US (occurrence: US)
  Receive Date: 20221222
  Receipt Date: 20230106
  Transmission Date: 20230418
  Serious: Yes (Other)
  Sender: FDA-Public Use
  Company Number: US-TEVA-2022-US-2837379

PATIENT
  Age: 63 Year
  Sex: Male

DRUGS (6)
  1. MYCOPHENOLIC ACID [Suspect]
     Active Substance: MYCOPHENOLIC ACID
     Indication: Immunosuppressant drug therapy
     Route: 065
  2. PREDNISONE [Suspect]
     Active Substance: PREDNISONE
     Indication: Immunosuppressant drug therapy
     Route: 065
  3. THYMOCYTE IMMUNE GLOBULIN NOS [Suspect]
     Active Substance: THYMOCYTE IMMUNE GLOBULIN NOS
     Indication: Immunosuppressant drug therapy
     Route: 065
  4. BELATACEPT [Suspect]
     Active Substance: BELATACEPT
     Indication: Immunosuppressant drug therapy
     Route: 065
  5. BRINCIDOFOVIR [Suspect]
     Active Substance: BRINCIDOFOVIR
     Indication: Adenovirus infection
     Route: 065
  6. CIDOFOVIR [Concomitant]
     Active Substance: CIDOFOVIR
     Indication: Adenovirus infection
     Route: 065

REACTIONS (5)
  - Adenovirus infection [Recovered/Resolved]
  - Adenovirus interstitial nephritis [Recovering/Resolving]
  - Complications of transplanted kidney [Recovering/Resolving]
  - Transplant rejection [Recovering/Resolving]
  - Drug ineffective [Unknown]
